FAERS Safety Report 17329768 (Version 1)
Quarter: 2020Q1

REPORT INFORMATION
  Report Type: Spontaneous
  Country: US (occurrence: US)
  Receive Date: 20200110
  Receipt Date: 20200110
  Transmission Date: 20200409
  Serious: Yes (Other)
  Sender: FDA-Public Use
  Company Number: None

PATIENT
  Age: 71 Year
  Sex: Male
  Weight: 83.9 kg

DRUGS (1)
  1. NIVOLUMAB [Suspect]
     Active Substance: NIVOLUMAB

REACTIONS (4)
  - Pancreatic neuroendocrine tumour [None]
  - Gastrointestinal disorder [None]
  - Pancreatic cyst [None]
  - Melanoma recurrent [None]

NARRATIVE: CASE EVENT DATE: 20191121
